FAERS Safety Report 6270031-8 (Version None)
Quarter: 2009Q3

REPORT INFORMATION
  Report Type: 
  Country: None (occurrence: None)
  Receive Date: 20090716
  Receipt Date: 20090707
  Transmission Date: 20100115
  Serious: Yes (Other)
  Sender: FDA-Public Use
  Company Number: US-BAYER-200925605NA

PATIENT
  Sex: Female

DRUGS (1)
  1. MIRENA [Suspect]
     Indication: DRUG USE FOR UNKNOWN INDICATION
     Dosage: CONTINUOUS DELIVERY
     Route: 015

REACTIONS (5)
  - ABDOMINAL PAIN LOWER [None]
  - BREAST PAIN [None]
  - FATIGUE [None]
  - MIGRAINE [None]
  - UTERINE PAIN [None]
